FAERS Safety Report 6992274-8 (Version None)
Quarter: 2010Q3

REPORT INFORMATION
  Report Type: 
  Country: None (occurrence: None)
  Receive Date: 20100914
  Receipt Date: 20100914
  Transmission Date: 20110219
  Serious: Yes (Other)
  Sender: FDA-Public Use
  Company Number: None

PATIENT
  Age: 69 Year
  Sex: Female
  Weight: 68.0396 kg

DRUGS (9)
  1. NEXIUM [Suspect]
     Indication: GASTROOESOPHAGEAL REFLUX DISEASE
     Dosage: 1 CAPSULE TWICE DAILY, AT LEAST 2 YEARS
  2. CELEBREX [Concomitant]
  3. SINGULAIR [Concomitant]
  4. CRESTOR [Concomitant]
  5. ALENDRONATE SODIUM [Concomitant]
  6. XOPENEX HFA [Concomitant]
  7. SPIRIVA [Concomitant]
  8. CYMBALTA [Concomitant]
  9. GABAPENTIN [Concomitant]

REACTIONS (3)
  - CAPSULE ISSUE [None]
  - CONDITION AGGRAVATED [None]
  - DYSPEPSIA [None]
